FAERS Safety Report 17279708 (Version 1)
Quarter: 2020Q1

REPORT INFORMATION
  Report Type: Spontaneous
  Country: FR (occurrence: FR)
  Receive Date: 20200116
  Receipt Date: 20200116
  Transmission Date: 20200409
  Serious: Yes (Hospitalization)
  Sender: FDA-Public Use
  Company Number: FR-MYLANLABS-2020M1003871

PATIENT
  Age: 5 Year
  Sex: Male
  Weight: 23 kg

DRUGS (5)
  1. HELICIDINE [Suspect]
     Active Substance: ESCARGOT
     Indication: COUGH
     Dosage: 1 DOSAGE FORM, QD
     Route: 048
     Dates: start: 20190926, end: 20190930
  2. DOLIPRANE [Concomitant]
     Active Substance: ACETAMINOPHEN
     Indication: PYREXIA
     Dosage: UNK UNK, PRN
     Dates: start: 20190926
  3. AMOXICILLIN. [Suspect]
     Active Substance: AMOXICILLIN
     Indication: COUGH
     Dosage: 3 DOSAGE FORM, QD
     Route: 048
     Dates: start: 20190926, end: 20190930
  4. IBUPROFEN. [Suspect]
     Active Substance: IBUPROFEN
     Indication: PYREXIA
     Dosage: 1 DOSAGE FORM, PRN
     Route: 048
     Dates: start: 20190926, end: 20190930
  5. SOLUPRED                           /00016217/ [Concomitant]
     Active Substance: PREDNISOLONE SODIUM METAZOATE
     Indication: COUGH
     Dosage: 1 DOSAGE FORM, QD
     Dates: start: 20190926, end: 20190930

REACTIONS (2)
  - Infection [Recovered/Resolved]
  - Stevens-Johnson syndrome [Recovered/Resolved]

NARRATIVE: CASE EVENT DATE: 20190930
